FAERS Safety Report 17488086 (Version 1)
Quarter: 2020Q1

REPORT INFORMATION
  Report Type: Spontaneous
  Country: US (occurrence: US)
  Receive Date: 20200302
  Receipt Date: 20200302
  Transmission Date: 20200409
  Serious: Yes (Other)
  Sender: FDA-Public Use
  Company Number: None

PATIENT
  Sex: Female

DRUGS (1)
  1. NORETHINDRONE .35 MG [Suspect]
     Active Substance: NORETHINDRONE

REACTIONS (2)
  - Maternal exposure during breast feeding [None]
  - Breast feeding [None]
